FAERS Safety Report 5377872-X (Version None)
Quarter: 2007Q2

REPORT INFORMATION
  Report Type: 
  Country: None (occurrence: None)
  Receive Date: 20070629
  Receipt Date: 20070129
  Transmission Date: 20071010
  Serious: Yes (Hospitalization)
  Sender: FDA-Public Use
  Company Number: 200603IM000193

PATIENT
  Age: 70 Year
  Sex: Female
  Weight: 104.3273 kg

DRUGS (6)
  1. INTERFERON GAMMA-1B [Suspect]
     Indication: IDIOPATHIC PULMONARY FIBROSIS
     Dosage: SEE IMAGE
     Route: 058
     Dates: start: 20050913, end: 20060303
  2. INTERFERON GAMMA-1B [Suspect]
     Indication: IDIOPATHIC PULMONARY FIBROSIS
     Dosage: SEE IMAGE
     Route: 058
     Dates: start: 20060321
  3. TYLENOL [Concomitant]
  4. VOLTAREN [Concomitant]
  5. PROTONIX [Concomitant]
  6. LANSOPRAZOLE [Concomitant]

REACTIONS (7)
  - ACQUIRED OESOPHAGEAL WEB [None]
  - GASTRIC ULCER [None]
  - GASTRITIS EROSIVE [None]
  - GASTROOESOPHAGEAL REFLUX DISEASE [None]
  - HIATUS HERNIA [None]
  - SYNCOPE [None]
  - UPPER GASTROINTESTINAL HAEMORRHAGE [None]
